FAERS Safety Report 18464235 (Version 2)
Quarter: 2021Q1

REPORT INFORMATION
  Report Type: Spontaneous
  Country: US (occurrence: US)
  Receive Date: 20201104
  Receipt Date: 20210315
  Transmission Date: 20210419
  Serious: No
  Sender: FDA-Public Use
  Company Number: US-ELI_LILLY_AND_COMPANY-US202010005749

PATIENT
  Sex: Female
  Weight: 95.6 kg

DRUGS (3)
  1. EMGALITY [Suspect]
     Active Substance: GALCANEZUMAB-GNLM
     Dosage: 120 MG, UNKNOWN
     Route: 058
     Dates: end: 202010
  2. EMGALITY [Suspect]
     Active Substance: GALCANEZUMAB-GNLM
     Indication: PRODUCT USED FOR UNKNOWN INDICATION
     Dosage: 120 MG, MONTHLY (1/M)
     Route: 058
     Dates: start: 202003
  3. PRENATAL VITAMINS [MINERALS NOS;VITAMINS NOS] [Concomitant]
     Active Substance: MINERALS\VITAMINS
     Indication: PRODUCT USED FOR UNKNOWN INDICATION

REACTIONS (1)
  - Maternal exposure during pregnancy [Unknown]
